FAERS Safety Report 6808564-5 (Version None)
Quarter: 2010Q2

REPORT INFORMATION
  Report Type: 
  Country: None (occurrence: None)
  Receive Date: 20100629
  Receipt Date: 20090723
  Transmission Date: 20101027
  Serious: No
  Sender: FDA-Public Use
  Company Number: US-PFIZER INC-2009231425

PATIENT
  Sex: Male
  Weight: 81.6 kg

DRUGS (3)
  1. VIAGRA [Interacting]
     Indication: ERECTILE DYSFUNCTION
     Dosage: 25 MG, 1X/DAY
  2. LIPITOR [Interacting]
     Indication: BLOOD CHOLESTEROL INCREASED
     Dosage: 10 MG, 1X/DAY
  3. LEVITRA [Suspect]
     Indication: ERECTILE DYSFUNCTION
     Dosage: UNK

REACTIONS (7)
  - BLOOD CHOLESTEROL INCREASED [None]
  - CYANOPSIA [None]
  - DRUG INEFFECTIVE [None]
  - DRUG INTERACTION [None]
  - FLUSHING [None]
  - NASAL CONGESTION [None]
  - PALPITATIONS [None]
